FAERS Safety Report 20469333 (Version 1)
Quarter: 2022Q1

REPORT INFORMATION
  Report Type: Spontaneous
  Country: US (occurrence: None)
  Receive Date: 20220213
  Receipt Date: 20220213
  Transmission Date: 20220424
  Serious: No
  Sender: FDA-Public Use
  Company Number: None

PATIENT
  Age: 64 Year
  Sex: Female
  Weight: 64.8 kg

DRUGS (1)
  1. DELSYM [Suspect]
     Active Substance: DEXTROMETHORPHAN
     Indication: Cough
     Dosage: OTHER QUANTITY : 3 OUNCE(S);?FREQUENCY : EVERY 12 HOURS;?
     Route: 048
     Dates: start: 20220209, end: 20220209

REACTIONS (3)
  - Dizziness [None]
  - Vision blurred [None]
  - Confusional state [None]

NARRATIVE: CASE EVENT DATE: 20220209
